FAERS Safety Report 12996294 (Version 1)
Quarter: 2016Q4

REPORT INFORMATION
  Report Type: Spontaneous
  Country: ES (occurrence: ES)
  Receive Date: 20161203
  Receipt Date: 20161203
  Transmission Date: 20170207
  Serious: Yes (Life-Threatening, Hospitalization, Other)
  Sender: FDA-Public Use
  Company Number: ES-AUROBINDO-AUR-APL-2016-01851

PATIENT
  Age: 52 Year
  Sex: Male

DRUGS (4)
  1. LINEZOLID. [Suspect]
     Active Substance: LINEZOLID
     Indication: SKIN ULCER
     Dosage: 600 MG, TWO TIMES A DAY
     Route: 048
  2. LINEZOLID. [Interacting]
     Active Substance: LINEZOLID
     Dosage: UNK
     Route: 042
  3. LINEZOLID. [Interacting]
     Active Substance: LINEZOLID
     Dosage: 600 MG, UNK
     Route: 048
  4. LINEZOLID. [Interacting]
     Active Substance: LINEZOLID
     Indication: PYREXIA
     Dosage: 600 MG, UNK
     Route: 042

REACTIONS (3)
  - Serotonin syndrome [Recovered/Resolved]
  - Self-medication [Unknown]
  - Drug interaction [Recovered/Resolved]
